FAERS Safety Report 5630245-4 (Version None)
Quarter: 2008Q1

REPORT INFORMATION
  Report Type: 
  Country: None (occurrence: None)
  Receive Date: 20080219
  Receipt Date: 20080206
  Transmission Date: 20080703
  Serious: Yes (Hospitalization)
  Sender: FDA-Public Use
  Company Number: JP-JNJFOC-20070702870

PATIENT
  Sex: Female
  Weight: 57 kg

DRUGS (21)
  1. REMICADE [Suspect]
     Route: 042
  2. REMICADE [Suspect]
     Route: 042
  3. REMICADE [Suspect]
     Route: 042
  4. REMICADE [Suspect]
     Route: 042
  5. REMICADE [Suspect]
     Route: 042
  6. REMICADE [Suspect]
     Indication: RHEUMATOID ARTHRITIS
     Route: 042
  7. PREDNISOLONE [Suspect]
     Indication: RHEUMATOID ARTHRITIS
     Route: 048
  8. RHEUMATREX [Suspect]
     Indication: RHEUMATOID ARTHRITIS
     Route: 048
  9. NELBON [Concomitant]
     Route: 048
  10. ALOSENN [Concomitant]
     Route: 048
  11. LOBU [Concomitant]
     Route: 048
  12. MUCOSOLVAN [Concomitant]
     Route: 048
  13. RIMATIL [Concomitant]
     Route: 048
  14. KENACORT [Concomitant]
     Route: 030
  15. KENACORT [Concomitant]
     Route: 030
  16. KENACORT [Concomitant]
     Route: 030
  17. MUCOSTA [Concomitant]
     Route: 048
  18. CIMETIDINE [Concomitant]
     Route: 048
  19. BUP-4 [Concomitant]
     Route: 048
  20. PALGIN [Concomitant]
     Route: 048
  21. VOLTAREN [Concomitant]
     Route: 054

REACTIONS (5)
  - CATARACT [None]
  - DISSEMINATED TUBERCULOSIS [None]
  - LIVER DISORDER [None]
  - OESOPHAGEAL CANDIDIASIS [None]
  - URINARY TRACT INFECTION [None]
